FAERS Safety Report 8303955-8 (Version None)
Quarter: 2012Q2

REPORT INFORMATION
  Report Type: 
  Country: None (occurrence: None)
  Receive Date: 20120423
  Receipt Date: 20120419
  Transmission Date: 20120825
  Serious: Yes (Other)
  Sender: FDA-Public Use
  Company Number: PHHY2012AU033664

PATIENT
  Sex: Female

DRUGS (1)
  1. ZOLEDRONOC ACID [Suspect]
     Dosage: 5 MG, UNK
     Route: 042
     Dates: start: 20110408

REACTIONS (5)
  - PAIN [None]
  - TOOTHACHE [None]
  - PAIN IN JAW [None]
  - EPISTAXIS [None]
  - ARTHRALGIA [None]
